FAERS Safety Report 6443138-X (Version None)
Quarter: 2009Q4

REPORT INFORMATION
  Report Type: 
  Country: None (occurrence: None)
  Receive Date: 20091117
  Receipt Date: 20091112
  Transmission Date: 20100525
  Serious: Yes (Other)
  Sender: FDA-Public Use
  Company Number: A0817065A

PATIENT
  Age: 16 Year
  Sex: Female

DRUGS (2)
  1. LAMICTAL [Suspect]
     Dates: start: 20091031, end: 20091110
  2. RISPERIDONE [Concomitant]

REACTIONS (3)
  - DERMATITIS ALLERGIC [None]
  - PYREXIA [None]
  - RASH MACULAR [None]
